FAERS Safety Report 18133554 (Version 2)
Quarter: 2021Q3

REPORT INFORMATION
  Report Type: Spontaneous
  Country: GB (occurrence: GB)
  Receive Date: 20200811
  Receipt Date: 20210730
  Transmission Date: 20211014
  Serious: Yes (Hospitalization, Other)
  Sender: FDA-Public Use
  Company Number: PHHY2019GB052376

PATIENT
  Age: 18 Year
  Sex: Female
  Weight: 43 kg

DRUGS (14)
  1. KYMRIAH [Suspect]
     Active Substance: TISAGENLECLEUCEL
     Indication: ACUTE LYMPHOCYTIC LEUKAEMIA RECURRENT
     Dosage: 0.5 X 10E6 CAR?T POSITIVE VIABLE T?CELLS/KG BODY WEIGHT
     Route: 042
     Dates: start: 20190206, end: 20190206
  2. AMOXICILLIN. [Concomitant]
     Active Substance: AMOXICILLIN
     Indication: PRODUCT USED FOR UNKNOWN INDICATION
     Dosage: 500 MG, BID
     Route: 065
  3. ACICLOVIR [Concomitant]
     Active Substance: ACYCLOVIR
     Indication: PRODUCT USED FOR UNKNOWN INDICATION
     Dosage: 200 MG, BID
     Route: 065
  4. EVOREL CONTI [Concomitant]
     Active Substance: ESTRADIOL\NORETHINDRONE ACETATE
     Indication: PRODUCT USED FOR UNKNOWN INDICATION
     Dosage: UNK
     Route: 065
  5. LEVETIRACETAM. [Concomitant]
     Active Substance: LEVETIRACETAM
     Indication: PRODUCT USED FOR UNKNOWN INDICATION
     Route: 065
  6. MESNA. [Concomitant]
     Active Substance: MESNA
     Dosage: 500 MG/M2, (IN 100ML SODIUM CHLORIDE 0.9 OVER 30 MINUTES ON DAY ?5 TO DAY ?4)
     Route: 040
  7. RANITIDINE. [Concomitant]
     Active Substance: RANITIDINE
     Indication: PRODUCT USED FOR UNKNOWN INDICATION
     Dosage: 150 MG, BID
     Route: 065
  8. ALENDRONATE [Concomitant]
     Active Substance: ALENDRONATE SODIUM
     Indication: PRODUCT USED FOR UNKNOWN INDICATION
     Dosage: 70 MG, QW
     Route: 065
  9. MESNA. [Concomitant]
     Active Substance: MESNA
     Indication: PRODUCT USED FOR UNKNOWN INDICATION
     Dosage: 200MG/M2 GIVEN 2 HOURS AND 6 HOURS AFTER STARTING CYCLOPHOSPHAMIDE ON DAY ?5 TO DAY ?4
     Route: 048
  10. PENTAMIDINE [Concomitant]
     Active Substance: PENTAMIDINE
     Indication: PRODUCT USED FOR UNKNOWN INDICATION
     Dosage: UNK
     Route: 065
  11. MESNA. [Concomitant]
     Active Substance: MESNA
     Dosage: 100 MG/M2, (BOLUS PRIOR TO EACH CYCLOPHOSPHAMIDE DOSE ON DAY ?5 TO DAY ?4)
     Route: 040
  12. LOPERAMIDE [Concomitant]
     Active Substance: LOPERAMIDE
     Indication: PRODUCT USED FOR UNKNOWN INDICATION
     Route: 065
  13. CYCLOPHOSPHAMIDE. [Concomitant]
     Active Substance: CYCLOPHOSPHAMIDE
     Indication: PRODUCT USED FOR UNKNOWN INDICATION
     Dosage: 500 MG/M2 (ON DAY ?5 TO DAY ?4)
     Route: 065
  14. FLUDARABINE [Concomitant]
     Active Substance: FLUDARABINE PHOSPHATE
     Indication: PRODUCT USED FOR UNKNOWN INDICATION
     Dosage: 30 MG/M2, (IN 50ML SODIUM CHLORIDE 0.9% OVER 30 MINUTES  ON DAY ?5 TO DAY ?2)
     Route: 042

REACTIONS (14)
  - Blood bilirubin increased [Unknown]
  - Pyrexia [Recovered/Resolved]
  - Periorbital oedema [Unknown]
  - Rash [Unknown]
  - Acute graft versus host disease in skin [Recovered/Resolved]
  - Rash papular [Recovering/Resolving]
  - Cytokine release syndrome [Unknown]
  - Acute graft versus host disease in intestine [Recovered/Resolved]
  - Diarrhoea [Unknown]
  - Osteonecrosis [Unknown]
  - Blood alkaline phosphatase increased [Unknown]
  - Rash pruritic [Recovering/Resolving]
  - Acute graft versus host disease in liver [Not Recovered/Not Resolved]
  - Blood pressure systolic decreased [Recovered/Resolved]

NARRATIVE: CASE EVENT DATE: 20190214
